FAERS Safety Report 15014276 (Version 3)
Quarter: 2018Q3

REPORT INFORMATION
  Report Type: Spontaneous
  Country: JP (occurrence: JP)
  Receive Date: 20180615
  Receipt Date: 20180720
  Transmission Date: 20181010
  Serious: Yes (Other)
  Sender: FDA-Public Use
  Company Number: JP-ABBVIE-18K-087-2386326-00

PATIENT
  Age: 43 Year
  Sex: Female
  Weight: 70 kg

DRUGS (8)
  1. HUMIRA [Suspect]
     Active Substance: ADALIMUMAB
     Indication: VOGT-KOYANAGI-HARADA SYNDROME
  2. CICLOSPORIN [Concomitant]
     Active Substance: CYCLOSPORINE
     Indication: VOGT-KOYANAGI-HARADA SYNDROME
     Route: 048
  3. ALENDRONATE SODIUM HYDRATE [Concomitant]
     Active Substance: ALENDRONATE SODIUM
     Indication: VOGT-KOYANAGI-HARADA SYNDROME
     Route: 048
  4. HUMIRA [Suspect]
     Active Substance: ADALIMUMAB
     Indication: UVEITIS
     Route: 058
     Dates: start: 20180502
  5. BETAMETHASONE. [Concomitant]
     Active Substance: BETAMETHASONE
     Indication: VOGT-KOYANAGI-HARADA SYNDROME
     Route: 047
  6. TROPICAMIDE. [Concomitant]
     Active Substance: TROPICAMIDE
     Indication: VOGT-KOYANAGI-HARADA SYNDROME
     Route: 047
  7. RABEPRAZOLE SODIUM. [Concomitant]
     Active Substance: RABEPRAZOLE SODIUM
     Indication: VOGT-KOYANAGI-HARADA SYNDROME
     Route: 048
  8. PREDNISOLONE. [Concomitant]
     Active Substance: PREDNISOLONE
     Indication: VOGT-KOYANAGI-HARADA SYNDROME
     Route: 048

REACTIONS (2)
  - Cervix carcinoma stage I [Unknown]
  - Metrorrhagia [Unknown]

NARRATIVE: CASE EVENT DATE: 20180509
